FAERS Safety Report 12621825 (Version 1)
Quarter: 2016Q3

REPORT INFORMATION
  Report Type: Spontaneous
  Country: US (occurrence: None)
  Receive Date: 20160803
  Receipt Date: 20160803
  Transmission Date: 20161109
  Serious: Yes (Hospitalization)
  Sender: FDA-Public Use
  Company Number: None

PATIENT
  Age: 20 Year
  Sex: Female
  Weight: 49.85 kg

DRUGS (1)
  1. MEDROXYPROGESTERONE ACETATE 150MG/1ML [Suspect]
     Active Substance: MEDROXYPROGESTERONE ACETATE
     Indication: CONTRACEPTION
     Dosage: 150MG 11-12.5 WKS IM
     Route: 030
     Dates: start: 20070411, end: 20150625

REACTIONS (2)
  - Thrombosis [None]
  - Myocardial infarction [None]

NARRATIVE: CASE EVENT DATE: 20150702
